FAERS Safety Report 6150612-2 (Version None)
Quarter: 2009Q2

REPORT INFORMATION
  Report Type: 
  Country: None (occurrence: None)
  Receive Date: 20090409
  Receipt Date: 20090401
  Transmission Date: 20091009
  Serious: Yes (Other)
  Sender: FDA-Public Use
  Company Number: US-SANOFI-SYNTHELABO-A03200901126

PATIENT
  Sex: Male
  Weight: 103.4 kg

DRUGS (11)
  1. COUMADIN [Suspect]
     Indication: CEREBROVASCULAR ACCIDENT
     Dosage: 6 MG ALTERNATING WITH 9 MG DAILY
     Route: 065
     Dates: start: 20080318
  2. COUMADIN [Suspect]
     Indication: CORONARY ARTERY THROMBOSIS
     Dosage: 6 MG ALTERNATING WITH 9 MG DAILY
     Route: 065
     Dates: start: 20080318
  3. COUMADIN [Suspect]
     Indication: ATRIAL FIBRILLATION
     Dosage: 6 MG ALTERNATING WITH 9 MG DAILY
     Route: 065
     Dates: start: 20080318
  4. PLAVIX [Suspect]
     Indication: ACUTE MYOCARDIAL INFARCTION
     Route: 048
     Dates: start: 20080216
  5. PLAVIX [Suspect]
     Indication: STENT PLACEMENT
     Route: 048
     Dates: start: 20080216
  6. PLAVIX [Suspect]
     Route: 048
     Dates: start: 20090101
  7. PLAVIX [Suspect]
     Route: 048
     Dates: start: 20090101
  8. LISINOPRIL [Concomitant]
     Indication: CORONARY ARTERY DISEASE
     Dosage: 10 MG
     Route: 048
  9. LISINOPRIL [Concomitant]
     Indication: HYPERTENSION
     Dosage: 10 MG
     Route: 048
  10. LIPITOR [Concomitant]
     Indication: BLOOD CHOLESTEROL INCREASED
     Dosage: 80 MG
     Route: 048
  11. ASPIRIN [Suspect]
     Indication: CORONARY ARTERY DISEASE
     Route: 048
     Dates: start: 20090219

REACTIONS (4)
  - ATRIAL FIBRILLATION [None]
  - CORONARY ARTERY THROMBOSIS [None]
  - EMBOLIC STROKE [None]
  - OVERDOSE [None]
